FAERS Safety Report 8521589-7 (Version None)
Quarter: 2012Q3

REPORT INFORMATION
  Report Type: 
  Country: None (occurrence: None)
  Receive Date: 20120719
  Receipt Date: 20120709
  Transmission Date: 20120928
  Serious: Yes (Hospitalization)
  Sender: FDA-Public Use
  Company Number: JP-VERTEX PHARMACEUTICALS INC.-AE-2012-007468

PATIENT
  Age: 63 Year
  Sex: Female

DRUGS (7)
  1. TELAVIC (TELAPREVIR) [Suspect]
     Route: 048
     Dates: start: 20120510, end: 20120514
  2. REBETOL [Concomitant]
     Route: 048
     Dates: start: 20120330, end: 20120412
  3. REBETOL [Concomitant]
     Indication: HEPATITIS C
     Route: 048
     Dates: start: 20120315, end: 20120329
  4. REBETOL [Concomitant]
     Route: 048
     Dates: start: 20120413, end: 20120517
  5. TELAVIC (TELAPREVIR) [Suspect]
     Indication: HEPATITIS C
     Route: 048
     Dates: start: 20120315, end: 20120509
  6. CEFAZOLIN SODIUM [Concomitant]
     Route: 048
     Dates: start: 20120419
  7. PEG-INTRON [Concomitant]
     Indication: HEPATITIS C
     Route: 051
     Dates: start: 20120315, end: 20120517

REACTIONS (4)
  - PYREXIA [None]
  - ERYTHEMA [None]
  - DRUG ERUPTION [None]
  - ERYTHEMA MULTIFORME [None]
